FAERS Safety Report 13359470 (Version 1)
Quarter: 2017Q1

REPORT INFORMATION
  Report Type: Spontaneous
  Country: US (occurrence: US)
  Receive Date: 20170321
  Receipt Date: 20170321
  Transmission Date: 20170429
  Serious: Yes (Hospitalization)
  Sender: FDA-Public Use
  Company Number: None

PATIENT
  Sex: Female

DRUGS (2)
  1. CHLORHEXIDINE SWABS [Suspect]
     Active Substance: CHLORHEXIDINE
     Route: 061
  2. BIOPATCH, CHLORHEXIDINE [Suspect]
     Active Substance: CHLORHEXIDINE

REACTIONS (2)
  - Infusion site erythema [None]
  - Irritability [None]
